FAERS Safety Report 9331836 (Version 1)
Quarter: 2013Q2

REPORT INFORMATION
  Report Type: Spontaneous
  Country: US (occurrence: None)
  Receive Date: 20130603
  Receipt Date: 20130603
  Transmission Date: 20140414
  Serious: Yes (Other)
  Sender: FDA-Public Use
  Company Number: CIO13029603

PATIENT
  Age: 60 Year
  Sex: Female

DRUGS (2)
  1. NYQUIL [Suspect]
     Dosage: UNKNOWN, ORAL
     Route: 048
  2. COPAXONE [Suspect]
     Dosage: UNKNOWN, ORAL
     Route: 058
     Dates: start: 201206, end: 201301

REACTIONS (4)
  - Loss of consciousness [None]
  - Amnesia [None]
  - Drug screen positive [None]
  - Drug interaction [None]
